FAERS Safety Report 5869012-5 (Version None)
Quarter: 2008Q3

REPORT INFORMATION
  Report Type: 
  Country: None (occurrence: None)
  Receive Date: 20080903
  Receipt Date: 20080826
  Transmission Date: 20090109
  Serious: Yes (Hospitalization)
  Sender: FDA-Public Use
  Company Number: A0744439A

PATIENT
  Age: 81 Year
  Sex: Male

DRUGS (7)
  1. REQUIP [Suspect]
     Indication: RESTLESS LEGS SYNDROME
     Dosage: 1MG FOUR TIMES PER DAY
     Route: 050
     Dates: start: 20080824
  2. LEVOPHED [Concomitant]
  3. DIPRIVAN [Concomitant]
  4. PROTONIX [Concomitant]
  5. DORILAX [Concomitant]
  6. ZITHROMAX [Concomitant]
  7. COMBIVENT [Concomitant]

REACTIONS (1)
  - BRADYCARDIA [None]
